FAERS Safety Report 4876128-9 (Version None)
Quarter: 2006Q1

REPORT INFORMATION
  Report Type: 
  Country: None (occurrence: None)
  Receive Date: 20060106
  Receipt Date: 20060106
  Transmission Date: 20060701
  Serious: Yes (Hospitalization)
  Sender: FDA-Public Use
  Company Number: None

PATIENT
  Sex: Female
  Weight: 52.1637 kg

DRUGS (1)
  1. ZOSYN [Suspect]
     Indication: CELLULITIS
     Dosage: 4.5 GRAMS EVERY 8 HRS IVPB
     Route: 042
     Dates: start: 20060101, end: 20060105

REACTIONS (3)
  - DYSPNOEA [None]
  - INFUSION RELATED REACTION [None]
  - RASH [None]
